FAERS Safety Report 11617709 (Version 2)
Quarter: 2016Q1

REPORT INFORMATION
  Report Type: Report from Study
  Country: JP (occurrence: JP)
  Receive Date: 20151009
  Receipt Date: 20160210
  Transmission Date: 20160525
  Serious: Yes (Death, Hospitalization)
  Sender: FDA-Public Use
  Company Number: JP-B.I. PHARMACEUTICALS,INC./RIDGEFIELD-2014-BI-46648NB

PATIENT
  Age: 64 Year
  Sex: Female
  Weight: 50 kg

DRUGS (19)
  1. CODEINE PHOSPHATE HYDRATE [Suspect]
     Active Substance: CODEINE PHOSPHATE
     Indication: LUNG ADENOCARCINOMA
     Route: 065
     Dates: start: 20150326
  2. MEDICON [Concomitant]
     Active Substance: DEXTROMETHORPHAN HYDROBROMIDE
     Indication: LUNG ADENOCARCINOMA
     Dosage: 72 ML
     Route: 048
     Dates: start: 20140626
  3. MUCOSTA [Concomitant]
     Active Substance: REBAMIPIDE
     Indication: PROPHYLAXIS
     Dosage: 100 MG
     Route: 048
     Dates: start: 20141027, end: 20150109
  4. GILOTRIF [Suspect]
     Active Substance: AFATINIB
     Dosage: 30 MG
     Route: 048
     Dates: start: 20140818, end: 20150430
  5. GASTER [Concomitant]
     Active Substance: FAMOTIDINE
     Indication: PROPHYLAXIS
     Dosage: 20 MG
     Route: 048
     Dates: start: 20140811, end: 20140814
  6. ISOTONIC SODIUM CHLORIDE SOLUTION [Concomitant]
     Active Substance: SODIUM CHLORIDE
     Indication: PROPHYLAXIS
     Dosage: 50 ML
     Route: 065
     Dates: start: 20140811, end: 20140815
  7. ISOBIDE [Concomitant]
     Active Substance: ISOSORBIDE
     Indication: PROPHYLAXIS
     Dosage: 90 ML
     Route: 048
     Dates: start: 20150115, end: 20150624
  8. SULPIRIDE [Concomitant]
     Active Substance: SULPIRIDE
     Dosage: 300 MG
     Route: 048
     Dates: start: 20150604, end: 20150618
  9. GILOTRIF [Suspect]
     Active Substance: AFATINIB
     Indication: LUNG ADENOCARCINOMA
     Dosage: 40 MG
     Route: 048
     Dates: start: 20140730, end: 20140812
  10. GILOTRIF [Suspect]
     Active Substance: AFATINIB
     Dosage: 20 MG
     Route: 048
     Dates: start: 20150514, end: 20150619
  11. SULPIRIDE [Concomitant]
     Active Substance: SULPIRIDE
     Indication: PROPHYLAXIS
     Dosage: 150 MG
     Route: 048
     Dates: start: 20150129, end: 20150212
  12. SULPIRIDE [Concomitant]
     Active Substance: SULPIRIDE
     Dosage: 150 MG
     Route: 048
     Dates: start: 20150619, end: 20150630
  13. BIOFERMIN [Concomitant]
     Active Substance: BACILLUS SUBTILIS\LACTOBACILLUS ACIDOPHILUS\STREPTOCOCCUS FAECAIS
     Indication: PROPHYLAXIS
     Dosage: 9 G
     Route: 048
     Dates: start: 20140825, end: 20150115
  14. FEXOFENADINE HYDROCHLORIDE. [Concomitant]
     Active Substance: FEXOFENADINE HYDROCHLORIDE
     Indication: PROPHYLAXIS
     Dosage: 120 MG
     Route: 048
     Dates: start: 20150528, end: 20150603
  15. LIDOCAINE HYDROCHLORIDE. [Concomitant]
     Active Substance: LIDOCAINE HYDROCHLORIDE
     Indication: PROPHYLAXIS
     Route: 048
     Dates: start: 20140812, end: 20140813
  16. RESPLEN [Concomitant]
     Active Substance: EPRAZINONE
     Indication: LUNG ADENOCARCINOMA
     Dosage: 60 MG
     Route: 048
     Dates: start: 20150226, end: 20150326
  17. SULPIRIDE [Concomitant]
     Active Substance: SULPIRIDE
     Dosage: 150 MG
     Route: 048
     Dates: start: 20150514, end: 20150603
  18. NEXIUM [Concomitant]
     Active Substance: ESOMEPRAZOLE MAGNESIUM
     Indication: PROPHYLAXIS
     Dosage: 20 MG
     Route: 048
     Dates: start: 20150622
  19. VEEN-D [Suspect]
     Active Substance: DEXTROSE
     Indication: PROPHYLAXIS
     Dosage: 500 ML
     Route: 065
     Dates: start: 20140809, end: 20140812

REACTIONS (27)
  - Malaise [Not Recovered/Not Resolved]
  - Paronychia [Recovered/Resolved]
  - Dehydration [Recovered/Resolved]
  - Dermatitis contact [Recovered/Resolved]
  - Nausea [Not Recovered/Not Resolved]
  - Epistaxis [Recovered/Resolved]
  - Malignant neoplasm progression [Fatal]
  - Ingrowing nail [Recovered/Resolved]
  - Nausea [Recovered/Resolved]
  - Stomatitis [Recovered/Resolved]
  - Hypokalaemia [Recovered/Resolved]
  - Hypokalaemia [Recovered/Resolved]
  - Eczema [Recovered/Resolved]
  - Diarrhoea [Recovered/Resolved]
  - Rash [Recovered/Resolved]
  - Ingrowing nail [Recovered/Resolved]
  - Constipation [Not Recovered/Not Resolved]
  - Nausea [Recovered/Resolved]
  - Rash [Recovered/Resolved]
  - Drug eruption [Recovered/Resolved]
  - Pyrexia [Recovered/Resolved]
  - Hypokalaemia [Recovered/Resolved]
  - Meningitis [Unknown]
  - Vomiting [Recovered/Resolved]
  - Alopecia [Unknown]
  - Cancer pain [Not Recovered/Not Resolved]
  - Diarrhoea [Recovered/Resolved]

NARRATIVE: CASE EVENT DATE: 20140805
